FAERS Safety Report 5360469-5 (Version None)
Quarter: 2007Q2

REPORT INFORMATION
  Report Type: 
  Country: None (occurrence: None)
  Receive Date: 20070530
  Receipt Date: 20070129
  Transmission Date: 20071010
  Serious: No
  Sender: FDA-Public Use
  Company Number: 2007PV029184

PATIENT
  Age: 58 Year
  Sex: Female
  Weight: 90.7194 kg

DRUGS (10)
  1. BYETTA [Suspect]
     Indication: DIABETES MELLITUS NON-INSULIN-DEPENDENT
     Dosage: 10 MCG;BID;SC 5 MCG;BID;SC
     Route: 058
     Dates: start: 20051101, end: 20051201
  2. BYETTA [Suspect]
     Indication: DIABETES MELLITUS NON-INSULIN-DEPENDENT
     Dosage: 10 MCG;BID;SC 5 MCG;BID;SC
     Route: 058
     Dates: start: 20051201
  3. ACTOS [Concomitant]
  4. CYMBALTA [Concomitant]
  5. BENICAR HCT [Concomitant]
  6. PRILOSEC [Concomitant]
  7. CELEBREX [Concomitant]
  8. VICODIN [Concomitant]
  9. FLEXERIL [Concomitant]
  10. ZETIA [Concomitant]

REACTIONS (2)
  - CARTILAGE INJURY [None]
  - PAIN IN EXTREMITY [None]
